FAERS Safety Report 7027519-1 (Version None)
Quarter: 2010Q4

REPORT INFORMATION
  Report Type: 
  Country: None (occurrence: None)
  Receive Date: 20101004
  Receipt Date: 20100921
  Transmission Date: 20110411
  Serious: Yes (Hospitalization, Other)
  Sender: FDA-Public Use
  Company Number: PHHY2010US63099

PATIENT
  Age: 40 Year
  Sex: Female
  Weight: 95.238 kg

DRUGS (14)
  1. RITALIN [Suspect]
     Indication: ATTENTION DEFICIT/HYPERACTIVITY DISORDER
     Dosage: 20 MG, BID
     Route: 048
  2. RITALIN [Suspect]
     Dosage: 20 MG EVERY MORNING
     Dates: start: 20100701
  3. GEODON [Suspect]
     Indication: BIPOLAR DISORDER
     Dosage: 160 MG DAILY
     Route: 048
     Dates: start: 20100708
  4. GEODON [Suspect]
     Indication: BIPOLAR I DISORDER
  5. GEODON [Suspect]
     Indication: AFFECTIVE DISORDER
  6. GEODON [Suspect]
     Indication: PSYCHOTIC DISORDER
  7. CYMBALTA [Suspect]
     Indication: HYPERSOMNIA
     Dosage: UNK
     Dates: end: 20100701
  8. LIPITOR [Concomitant]
     Dosage: UNK
  9. SEROQUEL [Concomitant]
  10. ATENOLOL [Concomitant]
     Dosage: UNK
  11. ESTRADIOL [Concomitant]
  12. NORTRIPTYLINE HCL [Concomitant]
  13. DEXLANSOPRAZOLE [Concomitant]
  14. CHLORDIAZEPOXIDE [Concomitant]
     Dosage: UNK

REACTIONS (22)
  - BIPOLAR DISORDER [None]
  - BLOOD GLUCOSE INCREASED [None]
  - CONVULSION [None]
  - DECREASED APPETITE [None]
  - DEPRESSED LEVEL OF CONSCIOUSNESS [None]
  - DEPRESSION [None]
  - DIABETES MELLITUS [None]
  - DISTURBANCE IN ATTENTION [None]
  - FATIGUE [None]
  - FLUID RETENTION [None]
  - GAIT DISTURBANCE [None]
  - HALLUCINATION, AUDITORY [None]
  - HALLUCINATION, VISUAL [None]
  - HEADACHE [None]
  - JOINT SWELLING [None]
  - MANIA [None]
  - OEDEMA PERIPHERAL [None]
  - PHARYNGEAL OEDEMA [None]
  - POOR QUALITY SLEEP [None]
  - STRESS [None]
  - SWOLLEN TONGUE [None]
  - TACHYPHRENIA [None]
